FAERS Safety Report 5731738-1 (Version None)
Quarter: 2008Q2

REPORT INFORMATION
  Report Type: 
  Country: None (occurrence: None)
  Receive Date: 20080506
  Receipt Date: 20080506
  Transmission Date: 20081010
  Serious: Yes (Hospitalization, Other)
  Sender: FDA-Public Use
  Company Number: None

PATIENT
  Age: 83 Year
  Sex: Female
  Weight: 54.4316 kg

DRUGS (2)
  1. AMBIEN CR [Suspect]
     Indication: INSOMNIA
     Dosage: ONE HS PO
     Route: 048
     Dates: start: 20040101, end: 20080424
  2. AMBIEN [Suspect]
     Indication: INSOMNIA
     Dosage: ONE HS PO
     Route: 048
     Dates: start: 20060101, end: 20080424

REACTIONS (6)
  - AGGRESSION [None]
  - AGITATION [None]
  - CONFUSIONAL STATE [None]
  - HALLUCINATION [None]
  - INSOMNIA [None]
  - STUPOR [None]
